FAERS Safety Report 20128753 (Version 1)
Quarter: 2021Q4

REPORT INFORMATION
  Report Type: Spontaneous
  Country: CZ (occurrence: CZ)
  Receive Date: 20211130
  Receipt Date: 20211130
  Transmission Date: 20220303
  Serious: Yes (Life-Threatening, Hospitalization, Other)
  Sender: FDA-Public Use
  Company Number: CZ-MYLANLABS-2021M1040164

PATIENT
  Age: 47 Year
  Sex: Female

DRUGS (6)
  1. IMATINIB [Suspect]
     Active Substance: IMATINIB
     Indication: Chronic myeloid leukaemia
     Dosage: UNK (400/200 MG)
     Route: 065
  2. DASATINIB [Suspect]
     Active Substance: DASATINIB
     Indication: Chronic myeloid leukaemia
     Dosage: 50 MILLIGRAM, ONCE A DAY
     Route: 065
  3. DASATINIB [Suspect]
     Active Substance: DASATINIB
     Dosage: 50 MILLIGRAM, ONCE A DAY
     Route: 065
     Dates: start: 200907
  4. DASATINIB [Suspect]
     Active Substance: DASATINIB
     Dosage: 100 MILLIGRAM, ONCE A DAY
     Route: 065
     Dates: start: 200909
  5. DASATINIB [Suspect]
     Active Substance: DASATINIB
     Dosage: 70 MILLIGRAM, ONCE A DAY
     Route: 065
     Dates: start: 201204
  6. DASATINIB [Suspect]
     Active Substance: DASATINIB
     Dosage: 60 MILLIGRAM, ONCE A DAY
     Route: 065
     Dates: start: 202002

REACTIONS (5)
  - Rash maculo-papular [Unknown]
  - Pulmonary arterial hypertension [Unknown]
  - Pleural effusion [Unknown]
  - Rash [Recovered/Resolved]
  - Prescribed underdose [Unknown]
